FAERS Safety Report 5309677-X (Version None)
Quarter: 2007Q2

REPORT INFORMATION
  Report Type: 
  Country: None (occurrence: None)
  Receive Date: 20070427
  Receipt Date: 20061110
  Transmission Date: 20071010
  Serious: No
  Sender: FDA-Public Use
  Company Number: US-GLAXOSMITHKLINE-A0627038A

PATIENT
  Age: 56 Year
  Sex: Female

DRUGS (2)
  1. DEXEDRINE [Suspect]
     Indication: NARCOLEPSY
     Dosage: 5MG UNKNOWN
  2. NO CONCURRENT MEDICATION [Concomitant]

REACTIONS (1)
  - DRUG INEFFECTIVE [None]
